FAERS Safety Report 9259501 (Version 1)
Quarter: 2013Q2

REPORT INFORMATION
  Report Type: Spontaneous
  Country: ID (occurrence: ID)
  Receive Date: 20130428
  Receipt Date: 20130428
  Transmission Date: 20140414
  Serious: Yes (Other)
  Sender: FDA-Public Use
  Company Number: ID-MERCK-1304USA015698

PATIENT
  Age: 57 Year
  Sex: Female

DRUGS (1)
  1. JANUVIA [Suspect]
     Indication: DIABETES MELLITUS

REACTIONS (4)
  - Foot amputation [Unknown]
  - Blood glucose abnormal [Unknown]
  - Vision blurred [Unknown]
  - Drug ineffective [Unknown]
